FAERS Safety Report 6532125-9 (Version None)
Quarter: 2009Q4

REPORT INFORMATION
  Report Type: 
  Country: None (occurrence: None)
  Receive Date: 20091228
  Receipt Date: 20090914
  Transmission Date: 20100525
  Serious: Yes (Other)
  Sender: FDA-Public Use
  Company Number: 20090411

PATIENT
  Age: 31 Year
  Sex: Female
  Weight: 87 kg

DRUGS (1)
  1. VENOFER [Suspect]
     Indication: RENAL FAILURE CHRONIC
     Dosage: INTRAVENOUS
     Route: 042
     Dates: start: 20090810

REACTIONS (2)
  - CHEST PAIN [None]
  - DYSPNOEA [None]
